FAERS Safety Report 19097859 (Version 1)
Quarter: 2021Q2

REPORT INFORMATION
  Report Type: Other
  Country: US (occurrence: US)
  Receive Date: 20210406
  Receipt Date: 20210406
  Transmission Date: 20210717
  Serious: Yes (Hospitalization, Other)
  Sender: FDA-Public Use
  Company Number: US-NIVAGEN-000002

PATIENT
  Age: 28 Year
  Sex: Female

DRUGS (7)
  1. KETOROLAC [Concomitant]
     Active Substance: KETOROLAC TROMETHAMINE
     Indication: PRODUCT USED FOR UNKNOWN INDICATION
  2. ONDANSETRON [Concomitant]
     Active Substance: ONDANSETRON
     Indication: PRODUCT USED FOR UNKNOWN INDICATION
  3. SEVOFLURANE. [Concomitant]
     Active Substance: SEVOFLURANE
     Indication: GENERAL ANAESTHESIA
     Dosage: SEVOFLURANE/FIO2 1.0 USING MECHANICAL VENTILATION
  4. PROPOFOL. [Concomitant]
     Active Substance: PROPOFOL
  5. FENTANYL. [Concomitant]
     Active Substance: FENTANYL
     Indication: PRODUCT USED FOR UNKNOWN INDICATION
  6. DEXAMETHASONE. [Concomitant]
     Active Substance: DEXAMETHASONE
     Indication: PRODUCT USED FOR UNKNOWN INDICATION
  7. SUCCINYLCHOLINE [Suspect]
     Active Substance: SUCCINYLCHOLINE
     Indication: PRODUCT USED FOR UNKNOWN INDICATION

REACTIONS (3)
  - Hyperthermia malignant [Recovered/Resolved]
  - Rhabdomyolysis [Recovered/Resolved]
  - Gene mutation [Unknown]
